FAERS Safety Report 12138785 (Version 3)
Quarter: 2016Q2

REPORT INFORMATION
  Report Type: Spontaneous
  Country: US (occurrence: US)
  Receive Date: 20160302
  Receipt Date: 20160518
  Transmission Date: 20160815
  Serious: Yes (Hospitalization, Other)
  Sender: FDA-Public Use
  Company Number: US-GLAXOSMITHKLINE-US2016030251

PATIENT
  Age: 86 Year
  Sex: Female

DRUGS (12)
  1. FLUTICASONE PROPIONATE. [Concomitant]
     Active Substance: FLUTICASONE PROPIONATE
  2. WARFARIN [Concomitant]
     Active Substance: WARFARIN
  3. OXYCODONE [Concomitant]
     Active Substance: OXYCODONE
  4. ADVAIR DISKUS [Suspect]
     Active Substance: FLUTICASONE PROPIONATE\SALMETEROL XINAFOATE
     Indication: LOWER RESPIRATORY TRACT INFECTION
  5. VERAPAMIL [Concomitant]
     Active Substance: VERAPAMIL HYDROCHLORIDE
  6. ADVAIR DISKUS [Suspect]
     Active Substance: FLUTICASONE PROPIONATE\SALMETEROL XINAFOATE
     Indication: ASTHMA
     Dosage: 500/50 MCG UNK
  7. OXYCONTIN [Concomitant]
     Active Substance: OXYCODONE HYDROCHLORIDE
  8. ADVAIR DISKUS [Suspect]
     Active Substance: FLUTICASONE PROPIONATE\SALMETEROL XINAFOATE
     Indication: CHRONIC OBSTRUCTIVE PULMONARY DISEASE
     Dosage: 1 PUFF(S), BID (500/50 MCG)
     Route: 055
     Dates: start: 2012
  9. PRESERVISION [Concomitant]
     Active Substance: MINERALS\VITAMINS
  10. WELLBUTRIN [Concomitant]
     Active Substance: BUPROPION HYDROCHLORIDE
  11. FUROSEMIDE. [Concomitant]
     Active Substance: FUROSEMIDE
  12. LORATIDINE [Concomitant]
     Active Substance: LORATADINE

REACTIONS (13)
  - Drug delivery device implantation [Recovered/Resolved]
  - Fall [Recovered/Resolved]
  - Macular degeneration [Not Recovered/Not Resolved]
  - Off label use [Unknown]
  - Hip fracture [Recovered/Resolved]
  - Expired product administered [Unknown]
  - Hip arthroplasty [Recovered/Resolved]
  - Spinal operation [Recovered/Resolved]
  - Rehabilitation therapy [Recovered/Resolved]
  - Visual acuity reduced [Not Recovered/Not Resolved]
  - Walking aid user [Not Recovered/Not Resolved]
  - Knee arthroplasty [Recovered/Resolved]
  - Pain [Unknown]

NARRATIVE: CASE EVENT DATE: 2014
